FAERS Safety Report 20548941 (Version 1)
Quarter: 2022Q1

REPORT INFORMATION
  Report Type: Other
  Country: GB (occurrence: None)
  Receive Date: 20220303
  Receipt Date: 20220303
  Transmission Date: 20220423
  Serious: Yes (Life-Threatening, Hospitalization)
  Sender: FDA-Public Use
  Company Number: GB-ROCHE-2950567

PATIENT
  Sex: Male

DRUGS (7)
  1. RISDIPLAM [Suspect]
     Active Substance: RISDIPLAM
     Indication: Spinal muscular atrophy
     Dosage: VIA PEG
     Route: 050
     Dates: end: 20211028
  2. PIPERACILLIN SODIUM\TAZOBACTAM SODIUM [Concomitant]
     Active Substance: PIPERACILLIN SODIUM\TAZOBACTAM SODIUM
     Indication: Infection
     Route: 042
     Dates: start: 20211031
  3. VANCOMYCIN [Concomitant]
     Active Substance: VANCOMYCIN
     Indication: Infection
     Route: 042
     Dates: start: 20211101
  4. AZITHROMYCIN [Concomitant]
     Active Substance: AZITHROMYCIN
     Indication: Prophylaxis
     Dosage: MON/WED/FRI
     Route: 048
     Dates: start: 20211028
  5. LEVETIRACETAM [Concomitant]
     Active Substance: LEVETIRACETAM
     Indication: Nervous system disorder prophylaxis
     Route: 048
     Dates: start: 20211029
  6. OMEPRAZOLE [Concomitant]
     Active Substance: OMEPRAZOLE
     Indication: Vomiting
     Route: 048
     Dates: start: 20211030
  7. SCOPOLAMINE [Concomitant]
     Active Substance: SCOPOLAMINE
     Route: 061
     Dates: start: 20211102

REACTIONS (2)
  - Cardiac arrest [Not Recovered/Not Resolved]
  - Dyspnoea [Unknown]

NARRATIVE: CASE EVENT DATE: 20211001
